FAERS Safety Report 4712357-2 (Version None)
Quarter: 2005Q3

REPORT INFORMATION
  Report Type: 
  Country: None (occurrence: None)
  Receive Date: 20050711
  Receipt Date: 20050628
  Transmission Date: 20060218
  Serious: Yes (Other)
  Sender: FDA-Public Use
  Company Number: 2005093553

PATIENT
  Sex: Male
  Weight: 81.6475 kg

DRUGS (16)
  1. VIAGRA [Suspect]
     Indication: ERECTILE DYSFUNCTION
     Dosage: 50 MG
  2. ALPHAGAN [Concomitant]
  3. ALL OTHER THERAPEUTIC PRODUCTS (ALL OTHER THERAPEUTIC PRODUCTS) [Concomitant]
  4. CALCIUM CITRATE (CALCIUM CITRATE) [Concomitant]
  5. ASPIRIN [Concomitant]
  6. MULTIVITAMINS (MULTIVIAMINS) [Concomitant]
  7. VITAMIN C (VITAMN C) [Concomitant]
  8. CENTRAL NUTRIENTS (GENERAL NUTRIENTS) [Concomitant]
  9. SAW PALMETTO (SAW PALMETTO) [Concomitant]
  10. VITAMIN B12 (VITAMIN B12) [Concomitant]
  11. OMEGA-3 TRIGLYCERIDES (OMEGA-3 TRIGLYCERIDES) [Concomitant]
  12. FOLIC ACID [Concomitant]
  13. CALCIUM MANESIUM ZINIC (CALCIUM, MAGNESIUM, ZINC) [Concomitant]
  14. KELP (KELP) [Concomitant]
  15. VITAMIN E [Concomitant]
  16. POTASSIUM GLUCONATE (POTASSIUM GLUCONATE) [Concomitant]

REACTIONS (5)
  - BLOOD CHOLESTEROL DECREASED [None]
  - BLOOD CHOLESTEROL INCREASED [None]
  - CATARACT OPERATION [None]
  - GLAUCOMA [None]
  - INTRAOCULAR PRESSURE TEST ABNORMAL [None]
